FAERS Safety Report 4454524-1 (Version None)
Quarter: 2004Q3

REPORT INFORMATION
  Report Type: 
  Country: None (occurrence: None)
  Receive Date: 20040917
  Receipt Date: 20040917
  Transmission Date: 20050211
  Serious: Yes (Hospitalization)
  Sender: FDA-Public Use
  Company Number: None

PATIENT
  Sex: Female
  Weight: 86.1834 kg

DRUGS (4)
  1. DOCETAXEL 75 MG/M2 [Suspect]
     Indication: DRUG RESISTANCE
     Dosage: 141 MG, Q 21 DAY, IV
     Route: 042
     Dates: start: 20040910
  2. DOCETAXEL 75 MG/M2 [Suspect]
     Indication: OVARIAN CANCER
     Dosage: 141 MG, Q 21 DAY, IV
     Route: 042
     Dates: start: 20040910
  3. GEMCITABINE 800 MG/M2 [Suspect]
     Indication: DRUG RESISTANCE
     Dosage: 1504 MG, D # 1 + 8, IV
     Route: 042
     Dates: start: 20040910
  4. GEMCITABINE 800 MG/M2 [Suspect]
     Indication: OVARIAN CANCER
     Dosage: 1504 MG, D # 1 + 8, IV
     Route: 042
     Dates: start: 20040910

REACTIONS (3)
  - CELLULITIS [None]
  - INJECTION SITE CELLULITIS [None]
  - POSTOPERATIVE INFECTION [None]
